FAERS Safety Report 9908920 (Version 1)
Quarter: 2014Q1

REPORT INFORMATION
  Report Type: Spontaneous
  Country: FR (occurrence: None)
  Receive Date: 20140212
  Receipt Date: 20140212
  Transmission Date: 20141002
  Serious: Yes (Hospitalization)
  Sender: FDA-Public Use
  Company Number: NSR_01513_2014

PATIENT
  Age: 58 Year
  Sex: Male

DRUGS (6)
  1. BACLOFEN [Suspect]
     Indication: PRODUCT USED FOR UNKNOWN INDICATION
     Route: 048
  2. BISOPROLOL [Concomitant]
  3. ATORVASTATIN [Concomitant]
  4. ESCITALOPRAM [Concomitant]
  5. ACAMPROSATE [Concomitant]
  6. NALTREXONE [Concomitant]

REACTIONS (17)
  - Depressed level of consciousness [None]
  - Agitation [None]
  - Confusional state [None]
  - Altered state of consciousness [None]
  - Nervous system disorder [None]
  - Muscle contractions involuntary [None]
  - Rhonchi [None]
  - Respiratory acidosis [None]
  - Brain natriuretic peptide increased [None]
  - Electroencephalogram abnormal [None]
  - Brain injury [None]
  - Hypercapnia [None]
  - Toxic encephalopathy [None]
  - Toxicity to various agents [None]
  - Haemodialysis [None]
  - Respiratory depression [None]
  - Overdose [None]
